FAERS Safety Report 20502887 (Version 1)
Quarter: 2022Q1

REPORT INFORMATION
  Report Type: Spontaneous
  Country: US (occurrence: None)
  Receive Date: 20220222
  Receipt Date: 20220222
  Transmission Date: 20220423
  Serious: No
  Sender: FDA-Public Use
  Company Number: None

PATIENT
  Age: 33 Year
  Sex: Female

DRUGS (1)
  1. OPSUMIT [Suspect]
     Active Substance: MACITENTAN
     Indication: Pulmonary arterial hypertension
     Dosage: 10 MG 1 TIME A DAY ORAL?
     Route: 048
     Dates: start: 202002

REACTIONS (4)
  - Migraine [None]
  - Nausea [None]
  - Treatment noncompliance [None]
  - Pain in extremity [None]

NARRATIVE: CASE EVENT DATE: 20220201
